FAERS Safety Report 4970150-X (Version None)
Quarter: 2006Q2

REPORT INFORMATION
  Report Type: 
  Country: None (occurrence: None)
  Receive Date: 20060406
  Receipt Date: 20060328
  Transmission Date: 20061013
  Serious: Yes (Other)
  Sender: FDA-Public Use
  Company Number: 2006-03-0179

PATIENT
  Age: 47 Year
  Sex: Female
  Weight: 74 kg

DRUGS (5)
  1. INTRON A (INTERFERON ALFA-EB RECOMBINANT) MULTIDOSE PEN [Suspect]
     Indication: MALIGNANT MELANOMA
     Dosage: 10 MIU SUBCUTANEOUS
     Route: 058
     Dates: start: 20050706, end: 20060222
  2. CALCIUM/VITAMIN D [Concomitant]
  3. SYNTHROID [Concomitant]
  4. LEXAPRO [Concomitant]
  5. MULTIVITAMIN [Concomitant]

REACTIONS (2)
  - VISUAL DISTURBANCE [None]
  - VISUAL FIELD DEFECT [None]
